FAERS Safety Report 7338467-1 (Version None)
Quarter: 2011Q1

REPORT INFORMATION
  Report Type: 
  Country: None (occurrence: None)
  Receive Date: 20110308
  Receipt Date: 20110223
  Transmission Date: 20110831
  Serious: Yes (Other)
  Sender: FDA-Public Use
  Company Number: US-ELI_LILLY_AND_COMPANY-US201011003393

PATIENT
  Sex: Female

DRUGS (6)
  1. JANUMET [Concomitant]
     Dosage: 10000 MG, DAILY (1/D)
  2. HUMALOG MIX 75/25 [Suspect]
     Dosage: UNK, AS NEEDED
     Dates: start: 20000101
  3. SYNTHROID [Concomitant]
     Dosage: UNK, DAILY (1/D)
  4. HUMULIN 70/30 [Suspect]
     Indication: DIABETES MELLITUS
     Dates: start: 20070101
  5. LANTUS [Concomitant]
     Dosage: 40 U, EACH EVENING
  6. LYRICA [Concomitant]

REACTIONS (2)
  - DYSPNOEA [None]
  - THYROID CANCER [None]
